FAERS Safety Report 18790936 (Version 24)
Quarter: 2024Q1

REPORT INFORMATION
  Report Type: Report from Study
  Country: US (occurrence: US)
  Receive Date: 20210126
  Receipt Date: 20240227
  Transmission Date: 20240409
  Serious: Yes (Other)
  Sender: FDA-Public Use
  Company Number: US-SHIRE-US202020626

PATIENT
  Age: 47 Year
  Sex: Female

DRUGS (3)
  1. HUMAN IMMUNOGLOBULIN G [Suspect]
     Active Substance: HUMAN IMMUNOGLOBULIN G
     Indication: Primary immunodeficiency syndrome
     Dosage: 12 GRAM, 1/WEEK
     Route: 065
  2. HUMAN IMMUNOGLOBULIN G [Suspect]
     Active Substance: HUMAN IMMUNOGLOBULIN G
     Indication: Immunodeficiency common variable
  3. PREDNISONE [Suspect]
     Active Substance: PREDNISONE
     Indication: Product used for unknown indication
     Dosage: UNK
     Route: 065

REACTIONS (79)
  - Mast cell activation syndrome [Unknown]
  - Autoimmune disorder [Unknown]
  - Tracheomalacia [Unknown]
  - Nephrolithiasis [Unknown]
  - Kidney infection [Unknown]
  - Follicular cystitis [Unknown]
  - Pneumonia [Unknown]
  - Cerebrovascular accident [Recovered/Resolved]
  - Arthritis [Unknown]
  - Fibromyalgia [Unknown]
  - Skin discolouration [Unknown]
  - Eye irritation [Unknown]
  - Cough [Unknown]
  - Chest discomfort [Unknown]
  - Oesophageal disorder [Unknown]
  - Atelectasis [Unknown]
  - Bronchospasm [Unknown]
  - Musculoskeletal discomfort [Unknown]
  - Ingrowing nail [Unknown]
  - Weight fluctuation [Unknown]
  - Pain in jaw [Unknown]
  - Food allergy [Unknown]
  - Weight decreased [Unknown]
  - Fungal infection [Unknown]
  - Occult blood [Unknown]
  - Raynaud^s phenomenon [Unknown]
  - Fall [Unknown]
  - Back injury [Unknown]
  - Nasal discomfort [Unknown]
  - Stress [Unknown]
  - Polymenorrhoea [Unknown]
  - Rotator cuff syndrome [Unknown]
  - Sneezing [Unknown]
  - Back disorder [Unknown]
  - Hypoaesthesia [Unknown]
  - Gastritis [Unknown]
  - Uterine leiomyoma [Unknown]
  - Polyp [Unknown]
  - Skin burning sensation [Unknown]
  - Infusion site discharge [Unknown]
  - Device infusion issue [Unknown]
  - Feeling abnormal [Unknown]
  - Musculoskeletal chest pain [Unknown]
  - Abdominal discomfort [Unknown]
  - Contusion [Unknown]
  - Hot flush [Unknown]
  - Body temperature increased [Unknown]
  - Oropharyngeal pain [Unknown]
  - Anaemia [Unknown]
  - Anxiety [Unknown]
  - Pain in extremity [Unknown]
  - Swelling [Unknown]
  - Blood pressure increased [Unknown]
  - Pain [Unknown]
  - Urticaria [Unknown]
  - Dizziness [Unknown]
  - Infusion site pain [Unknown]
  - Diarrhoea [Unknown]
  - Dyspnoea [Unknown]
  - Vomiting [Unknown]
  - Headache [Unknown]
  - Arthralgia [Unknown]
  - Nausea [Unknown]
  - Pruritus [Unknown]
  - Spinal disorder [Unknown]
  - Obstructive airways disorder [Recovered/Resolved]
  - COVID-19 [Recovering/Resolving]
  - Intervertebral disc degeneration [Recovering/Resolving]
  - Neck pain [Unknown]
  - Joint swelling [Unknown]
  - Cystitis [Unknown]
  - Obstruction [Not Recovered/Not Resolved]
  - Illness [Unknown]
  - Thinking abnormal [Unknown]
  - Palpitations [Unknown]
  - Insomnia [Unknown]
  - Back pain [Unknown]
  - Migraine [Recovered/Resolved]
  - Fatigue [Unknown]

NARRATIVE: CASE EVENT DATE: 20200122
